FAERS Safety Report 5424869-7 (Version None)
Quarter: 2007Q3

REPORT INFORMATION
  Report Type: 
  Country: None (occurrence: None)
  Receive Date: 20070824
  Receipt Date: 20070822
  Transmission Date: 20080115
  Serious: Yes (Hospitalization)
  Sender: FDA-Public Use
  Company Number: FRWYE206422AUG07

PATIENT
  Age: 86 Year
  Sex: Female

DRUGS (5)
  1. EFFEXOR XR [Suspect]
     Route: 048
     Dates: start: 20070707, end: 20070709
  2. MODOPAR [Concomitant]
     Route: 048
  3. LIPANOR [Concomitant]
     Route: 048
  4. LORAZEPAM [Concomitant]
     Route: 048
  5. SECTRAL [Concomitant]
     Route: 048

REACTIONS (3)
  - CONFUSIONAL STATE [None]
  - FALL [None]
  - HYPONATRAEMIA [None]
